FAERS Safety Report 6911948-8 (Version None)
Quarter: 2010Q3

REPORT INFORMATION
  Report Type: 
  Country: None (occurrence: None)
  Receive Date: 20100806
  Receipt Date: 20070905
  Transmission Date: 20110219
  Serious: No
  Sender: FDA-Public Use
  Company Number: US-PFIZER INC-2007050580

PATIENT
  Sex: Female
  Weight: 64.545 kg

DRUGS (5)
  1. DETROL LA [Suspect]
     Indication: URINARY INCONTINENCE
     Dates: start: 20070514
  2. SYNTHROID [Concomitant]
  3. ZOCOR [Concomitant]
  4. FLECAINIDE ACETATE [Concomitant]
  5. RELAFEN [Concomitant]

REACTIONS (1)
  - POLLAKIURIA [None]
